FAERS Safety Report 4613831-X (Version None)
Quarter: 2005Q1

REPORT INFORMATION
  Report Type: 
  Country: None (occurrence: None)
  Receive Date: 20050315
  Receipt Date: 20050309
  Transmission Date: 20050727
  Serious: Yes (Other)
  Sender: FDA-Public Use
  Company Number: OMPQ-NO-0503S-0529

PATIENT
  Age: 61 Year
  Sex: Female
  Weight: 61 kg

DRUGS (5)
  1. OMNIPAQUE 140 [Suspect]
     Indication: METASTASIS
     Dosage: 100 ML, SINGLE DOSE, I.V.
     Route: 042
     Dates: start: 20050125, end: 20050125
  2. LEVOTHYROXINE SODIUM (L-THYROXIN) [Concomitant]
  3. LORATADINE (CLARITYNE) [Concomitant]
  4. BETAMETHASONE [Concomitant]
  5. BARIUM SULFATE (MICROPAQUE) [Concomitant]

REACTIONS (1)
  - OESOPHAGITIS [None]
